FAERS Safety Report 7806803-5 (Version None)
Quarter: 2011Q4

REPORT INFORMATION
  Report Type: 
  Country: None (occurrence: None)
  Receive Date: 20111011
  Receipt Date: 20111007
  Transmission Date: 20120403
  Serious: Yes (Other)
  Sender: FDA-Public Use
  Company Number: US-PFIZER INC-2011240217

PATIENT
  Sex: Female
  Weight: 80.726 kg

DRUGS (4)
  1. SUTENT [Suspect]
     Indication: MALIGNANT NEOPLASM OF ISLETS OF LANGERHANS
     Dosage: 50 MG, DAILY
     Route: 048
     Dates: start: 20090101
  2. SLOW-FE [Concomitant]
     Dosage: UNK
     Route: 048
  3. SANDOSTATIN [Concomitant]
     Indication: MALIGNANT NEOPLASM OF ISLETS OF LANGERHANS
     Dosage: 60 MG, EVERY 30 DAYS
     Route: 030
  4. SANDOSTATIN [Concomitant]
     Indication: DIARRHOEA

REACTIONS (2)
  - HAEMATURIA [None]
  - NEPHROLITHIASIS [None]
